FAERS Safety Report 10219639 (Version 1)
Quarter: 2014Q2

REPORT INFORMATION
  Report Type: Spontaneous
  Country: US (occurrence: None)
  Receive Date: 20140603
  Receipt Date: 20140603
  Transmission Date: 20141212
  Serious: Yes (Other)
  Sender: FDA-Public Use
  Company Number: SYM-2014-20147

PATIENT
  Sex: Male

DRUGS (6)
  1. WELLBUTRIN (BUPROPION HYDROCHLORIDE) (TABLET) (BUPROPION HYDROCHLORIDE) [Suspect]
     Indication: DEPRESSION
     Route: 048
  2. WELLBUTRIN (BUPROPION HYDROCHLORIDE) (TABLET) (BUPROPION HYDROCHLORIDE) [Suspect]
     Indication: AFFECTIVE DISORDER
     Route: 048
  3. ADDERALL (OBETROL /01345401/) (DEXAMFETAMINE SULFATE, AMFETAMINE SULFATE, AMFETAMINE ASPARTATE, DEXAMFETAMINE SACCHARATE) [Suspect]
     Indication: PRODUCT USED FOR UNKNOWN INDICATION
  4. CONCERTA (METHYLPHENIDATE HYDROCHLORIDE) (METHYLPHENIDATE HYDROCHLORIDE) [Suspect]
     Indication: PRODUCT USED FOR UNKNOWN INDICATION
  5. DEPAKOTE (VALPROATE SEMISODIUM) (VALPROATE SEMISODIUM) [Suspect]
     Indication: PRODUCT USED FOR UNKNOWN INDICATION
  6. RITALIN (METHYLPHENIDATE HYDROCHLORIDE) (METHYLPHENIDATE HYDROCHLORIDE) [Suspect]
     Indication: PRODUCT USED FOR UNKNOWN INDICATION

REACTIONS (5)
  - Somnolence [None]
  - Feeling drunk [None]
  - Feeling abnormal [None]
  - Growth retardation [None]
  - Hormone level abnormal [None]
